FAERS Safety Report 11432561 (Version 1)
Quarter: 2015Q3

REPORT INFORMATION
  Report Type: Spontaneous
  Country: US (occurrence: US)
  Receive Date: 20150828
  Receipt Date: 20150828
  Transmission Date: 20151125
  Serious: Yes (Other)
  Sender: FDA-Public Use
  Company Number: US-ASTRAZENECA-2015SE81620

PATIENT
  Age: 47 Year
  Sex: Female
  Weight: 71.7 kg

DRUGS (21)
  1. AMOXICILLIN -KCLAV [Concomitant]
     Indication: SINUSITIS
     Route: 048
  2. H-COD-ACETAMINOPHIN [Concomitant]
     Indication: HEADACHE
     Dosage: 5/325 MG, FOUR TIMES A DAY AS NEEDED
     Route: 048
  3. CLONAZEPAM. [Concomitant]
     Active Substance: CLONAZEPAM
     Indication: SEIZURE
     Route: 048
  4. DEPAKOTE [Concomitant]
     Active Substance: DIVALPROEX SODIUM
     Indication: SEIZURE
     Route: 048
     Dates: start: 2002
  5. LYRICA [Concomitant]
     Active Substance: PREGABALIN
     Indication: FIBROMYALGIA
     Route: 048
     Dates: start: 2015
  6. SHOT FOR MIGRAINE [Concomitant]
     Indication: MIGRAINE
     Route: 065
  7. PIROXICAM. [Concomitant]
     Active Substance: PIROXICAM
     Route: 048
  8. NOVOLOG [Concomitant]
     Active Substance: INSULIN ASPART
     Indication: DIABETES MELLITUS
     Dosage: 5 BEFORE MEALS
     Route: 065
     Dates: start: 2002
  9. ONDANSETRON [Concomitant]
     Active Substance: ONDANSETRON
     Indication: NAUSEA
     Route: 048
     Dates: start: 2015
  10. CYMBALTA [Concomitant]
     Active Substance: DULOXETINE HYDROCHLORIDE
     Indication: FIBROMYALGIA
     Route: 048
     Dates: start: 2013
  11. NIFEDIPINE XL [Concomitant]
     Active Substance: NIFEDIPINE
     Indication: HYPERTENSION
     Route: 048
     Dates: start: 2002
  12. CLODETASOL PROP [Concomitant]
     Indication: RASH
     Dosage: DAILY
     Route: 061
     Dates: start: 20150813
  13. LANTUS [Concomitant]
     Active Substance: INSULIN GLARGINE
     Indication: DIABETES MELLITUS
     Dosage: 10 AT NIGHT EVERY 8 HOURS
     Dates: start: 2002
  14. PENICILLIN [Concomitant]
     Active Substance: PENICILLIN
     Indication: DIARRHOEA
     Route: 048
  15. CLINDAMYCIN [Concomitant]
     Active Substance: CLINDAMYCIN\CLINDAMYCIN PHOSPHATE
     Indication: DIARRHOEA
     Route: 048
  16. BUTA-APAP-CAFFEINE [Concomitant]
     Indication: MIGRAINE
     Dosage: THREE TIMES A DAY
     Route: 048
  17. KETOCONAZOLE. [Concomitant]
     Active Substance: KETOCONAZOLE
     Indication: RASH
     Dosage: DAILY
     Route: 061
     Dates: start: 20150813
  18. CLONIDINE. [Concomitant]
     Active Substance: CLONIDINE
     Indication: SLEEP DISORDER
     Route: 048
     Dates: start: 201506
  19. IMODIUM [Concomitant]
     Active Substance: LOPERAMIDE HYDROCHLORIDE
     Indication: CONSTIPATION
     Route: 048
  20. NEXIUM [Suspect]
     Active Substance: ESOMEPRAZOLE MAGNESIUM
     Indication: GASTROOESOPHAGEAL REFLUX DISEASE
     Route: 048
  21. VITAMINS [Concomitant]
     Active Substance: VITAMINS
     Route: 048

REACTIONS (21)
  - Seizure [Unknown]
  - Diabetic eye disease [Unknown]
  - Drug ineffective [Unknown]
  - Arthritis [Unknown]
  - Skin infection [Unknown]
  - Cataract [Unknown]
  - Road traffic accident [Unknown]
  - Type 1 diabetes mellitus [Unknown]
  - Nausea [Unknown]
  - Constipation [Unknown]
  - Weight increased [Unknown]
  - Migraine [Unknown]
  - Fall [Unknown]
  - Upper limb fracture [Unknown]
  - Blood glucose abnormal [Unknown]
  - Rash [Unknown]
  - Hypertension [Unknown]
  - Fibromyalgia [Unknown]
  - Sinusitis [Unknown]
  - Diarrhoea [Unknown]
  - Abdominal pain upper [Unknown]

NARRATIVE: CASE EVENT DATE: 2002
